FAERS Safety Report 20788912 (Version 2)
Quarter: 2025Q2

REPORT INFORMATION
  Report Type: Spontaneous
  Country: US (occurrence: US)
  Receive Date: 20220505
  Receipt Date: 20250611
  Transmission Date: 20250717
  Serious: Yes (Other)
  Sender: AUROBINDO
  Company Number: US-MYLANLABS-2022M1032940

PATIENT
  Age: 4 Decade
  Sex: Female

DRUGS (19)
  1. AMITRIPTYLINE [Suspect]
     Active Substance: AMITRIPTYLINE
     Indication: Sphincter of Oddi dysfunction
     Dosage: 35 MILLIGRAM, ONCE A DAY
     Route: 065
  2. TIZANIDINE [Suspect]
     Active Substance: TIZANIDINE
     Indication: Sphincter of Oddi dysfunction
     Route: 065
  3. TIZANIDINE [Suspect]
     Active Substance: TIZANIDINE
     Indication: Analgesic therapy
  4. DULOXETINE [Suspect]
     Active Substance: DULOXETINE
     Indication: Sphincter of Oddi dysfunction
     Dosage: 60 MILLIGRAM, ONCE A DAY
     Route: 065
  5. DOXEPIN HYDROCHLORIDE [Suspect]
     Active Substance: DOXEPIN HYDROCHLORIDE
     Indication: Sphincter of Oddi dysfunction
     Route: 065
  6. DOXEPIN HYDROCHLORIDE [Suspect]
     Active Substance: DOXEPIN HYDROCHLORIDE
     Indication: Analgesic therapy
  7. LORAZEPAM [Suspect]
     Active Substance: LORAZEPAM
     Indication: Sphincter of Oddi dysfunction
     Route: 065
  8. LORAZEPAM [Suspect]
     Active Substance: LORAZEPAM
     Indication: Analgesic therapy
  9. LIDOCAINE [Suspect]
     Active Substance: LIDOCAINE
     Indication: Sphincter of Oddi dysfunction
     Route: 061
  10. LIDOCAINE [Suspect]
     Active Substance: LIDOCAINE
     Indication: Analgesic therapy
  11. PREGABALIN [Suspect]
     Active Substance: PREGABALIN
     Indication: Sphincter of Oddi dysfunction
     Route: 065
  12. PREGABALIN [Suspect]
     Active Substance: PREGABALIN
     Indication: Analgesic therapy
  13. SUMATRIPTAN [Suspect]
     Active Substance: SUMATRIPTAN
     Indication: Sphincter of Oddi dysfunction
     Route: 065
  14. SUMATRIPTAN [Suspect]
     Active Substance: SUMATRIPTAN
     Indication: Analgesic therapy
  15. TRAMADOL [Suspect]
     Active Substance: TRAMADOL
     Indication: Sphincter of Oddi dysfunction
     Route: 065
  16. TRAMADOL [Suspect]
     Active Substance: TRAMADOL
     Indication: Analgesic therapy
  17. BACLOFEN [Suspect]
     Active Substance: BACLOFEN
     Indication: Sphincter of Oddi dysfunction
     Route: 065
  18. BACLOFEN [Suspect]
     Active Substance: BACLOFEN
     Indication: Analgesic therapy
  19. BUPROPION [Suspect]
     Active Substance: BUPROPION
     Indication: Analgesic therapy
     Route: 065

REACTIONS (2)
  - Drug ineffective [Unknown]
  - Off label use [Unknown]
